FAERS Safety Report 10583779 (Version 2)
Quarter: 2014Q4

REPORT INFORMATION
  Report Type: Spontaneous
  Country: GB (occurrence: None)
  Receive Date: 20141112
  Receipt Date: 20141112
  Transmission Date: 20150529
  Serious: Yes (Other)
  Sender: FDA-Public Use
  Company Number: NL01PV14.37840

PATIENT
  Sex: Male

DRUGS (7)
  1. DIFFUNDOX (TAMSULOSIN) CAPSULE [Suspect]
     Active Substance: TAMSULOSIN
     Indication: MICTURITION URGENCY
     Route: 048
  2. ADCAL D3 (CALCIUM CARBONATE, COLECALCIFEROL) [Concomitant]
  3. LANSOPRAZOLE. [Concomitant]
     Active Substance: LANSOPRAZOLE
  4. AMLODIPINE [Concomitant]
     Active Substance: AMLODIPINE BESYLATE
  5. AMITRIPTYLINE /00002202/ (AMITRIPTYLINE HYDROCHLORIDE) [Concomitant]
  6. PARACETAMOL [Concomitant]
     Active Substance: ACETAMINOPHEN
  7. DIFFUNDOX (TAMSULOSIN) CAPSULE [Suspect]
     Active Substance: TAMSULOSIN
     Indication: PROSTATOMEGALY
     Route: 048

REACTIONS (7)
  - Cerebrovascular accident [None]
  - Intercepted drug administration error [None]
  - Wrong technique in drug usage process [None]
  - Drug ineffective [None]
  - Osteoarthritis [None]
  - Discomfort [None]
  - Hypertension [None]

NARRATIVE: CASE EVENT DATE: 20140326
